FAERS Safety Report 7757545-6 (Version None)
Quarter: 2011Q3

REPORT INFORMATION
  Report Type: 
  Country: None (occurrence: None)
  Receive Date: 20110916
  Receipt Date: 20110913
  Transmission Date: 20111222
  Serious: Yes (Other)
  Sender: FDA-Public Use
  Company Number: JP-PFIZER INC-2011204753

PATIENT
  Age: 27 Year
  Sex: Male
  Weight: 61 kg

DRUGS (8)
  1. ALLEGRA [Suspect]
     Indication: DERMATITIS
     Dosage: 60 MG, 1X/DAY
     Route: 048
     Dates: start: 20110308
  2. PROTOPIC [Concomitant]
     Indication: DERMATITIS
     Dosage: 2.5 G, 1X/DAY
     Dates: start: 20110711
  3. JUMI-HAIDOKU-TO [Concomitant]
     Indication: ECZEMA
     Dosage: 3 DF, 1X/DAY
     Route: 048
     Dates: start: 20091009
  4. LYRICA [Suspect]
     Indication: PRURITUS
  5. EPPI-KA-ZYUTU-TO [Suspect]
     Indication: ECZEMA
     Dosage: 2.5 G, 1X/DAY
     Route: 048
     Dates: start: 20100215
  6. RINDERON-DP [Concomitant]
     Indication: DERMATITIS
     Dosage: 5 G, 1X/DAY
     Dates: start: 20110315
  7. CELESTAMINE TAB [Concomitant]
     Indication: ECZEMA
     Dosage: 1 DF, 1X/DAY
     Route: 048
     Dates: start: 20091009
  8. LYRICA [Suspect]
     Indication: PAIN
     Dosage: 25 MG, 1X/DAY
     Route: 048
     Dates: start: 20110811, end: 20110811

REACTIONS (11)
  - PYREXIA [None]
  - GENERALISED OEDEMA [None]
  - MALAISE [None]
  - BLOOD CREATINE PHOSPHOKINASE INCREASED [None]
  - WHITE BLOOD CELL COUNT INCREASED [None]
  - HEPATIC FUNCTION ABNORMAL [None]
  - PLEURAL EFFUSION [None]
  - ALANINE AMINOTRANSFERASE INCREASED [None]
  - EOSINOPHIL COUNT INCREASED [None]
  - WEIGHT INCREASED [None]
  - ASPARTATE AMINOTRANSFERASE INCREASED [None]
